FAERS Safety Report 7562632-1 (Version None)
Quarter: 2011Q2

REPORT INFORMATION
  Report Type: 
  Country: None (occurrence: None)
  Receive Date: 20110622
  Receipt Date: 20110608
  Transmission Date: 20111010
  Serious: Yes (Life-Threatening, Hospitalization)
  Sender: FDA-Public Use
  Company Number: US-MYLANLABS-2011S1011913

PATIENT
  Age: 35 Year

DRUGS (3)
  1. PERCOCET [Suspect]
     Indication: DRUG ABUSE
  2. FENTANYL-100 [Suspect]
     Indication: DRUG ABUSE
     Route: 048
  3. PROCET                             /01554201/ [Concomitant]
     Dosage: 2 TABLETS

REACTIONS (5)
  - RESPIRATORY FAILURE [None]
  - CONVULSION [None]
  - HYPOTENSION [None]
  - LETHARGY [None]
  - INCORRECT ROUTE OF DRUG ADMINISTRATION [None]
